FAERS Safety Report 5601192-9 (Version None)
Quarter: 2008Q1

REPORT INFORMATION
  Report Type: 
  Country: None (occurrence: None)
  Receive Date: 20080122
  Receipt Date: 20080122
  Transmission Date: 20080703
  Serious: No
  Sender: FDA-Public Use
  Company Number: None

PATIENT
  Sex: Male
  Weight: 80.5 kg

DRUGS (1)
  1. XENICAL [Suspect]
     Indication: BLOOD CHOLESTEROL INCREASED
     Dosage: 120 MG TID PO
     Route: 048

REACTIONS (2)
  - ABNORMAL FAECES [None]
  - FLATULENCE [None]
